FAERS Safety Report 9135062 (Version 6)
Quarter: 2014Q2

REPORT INFORMATION
  Report Type: Spontaneous
  Country: US (occurrence: US)
  Receive Date: 20130304
  Receipt Date: 20140506
  Transmission Date: 20141212
  Serious: Yes (Hospitalization, Disabling, Other)
  Sender: FDA-Public Use
  Company Number: US-009507513-1302USA013628

PATIENT
  Sex: Male
  Weight: 104.31 kg

DRUGS (8)
  1. PROPECIA [Suspect]
     Indication: ALOPECIA
     Dosage: 1 MG, QD
     Route: 048
     Dates: start: 20071012, end: 201104
  2. FLECAINIDE ACETATE [Concomitant]
     Indication: ARRHYTHMIA SUPRAVENTRICULAR
     Dosage: UNK
     Dates: start: 2003
  3. MELOXICAM [Concomitant]
     Indication: ARTHRITIS
     Dosage: UNK
     Dates: start: 2003
  4. PREDNISONE [Concomitant]
     Indication: ARTHRITIS
     Dosage: UNK
     Dates: start: 2003
  5. NAPROXEN [Concomitant]
     Indication: ARTHRITIS
     Dosage: UNK
     Dates: start: 2003, end: 201207
  6. CLOBETASOL PROPIONATE [Concomitant]
     Indication: PSORIASIS
     Dosage: UNK
     Dates: start: 1995
  7. METHOTREXATE [Concomitant]
     Indication: PSORIASIS
     Dosage: UNK
     Dates: start: 2006
  8. METHOTREXATE [Concomitant]
     Indication: PSORIATIC ARTHROPATHY

REACTIONS (27)
  - Breast cancer stage III [Recovered/Resolved]
  - Simple mastectomy [Unknown]
  - Breast mass [Recovered/Resolved]
  - Mastectomy [Unknown]
  - Mass excision [Unknown]
  - Visual field defect [Recovering/Resolving]
  - Anxiety [Not Recovered/Not Resolved]
  - Surgery [Unknown]
  - Deafness [Unknown]
  - Organic erectile dysfunction [Not Recovered/Not Resolved]
  - Breast cancer male [Unknown]
  - Weight increased [Unknown]
  - Skin hyperpigmentation [Recovering/Resolving]
  - Radiotherapy [Unknown]
  - Ingrowing nail [Unknown]
  - Skin lesion [Unknown]
  - Visual field defect [Unknown]
  - Migraine with aura [Unknown]
  - Swelling [Unknown]
  - Atrial fibrillation [Unknown]
  - Mastoidectomy [Unknown]
  - Hydrocele [Unknown]
  - Trigger finger [Unknown]
  - Renal stone removal [Unknown]
  - Decreased interest [Unknown]
  - Basal cell carcinoma [Unknown]
  - Skin neoplasm excision [Unknown]
